FAERS Safety Report 7465255-8 (Version None)
Quarter: 2011Q2

REPORT INFORMATION
  Report Type: 
  Country: None (occurrence: None)
  Receive Date: 20110505
  Receipt Date: 20110505
  Transmission Date: 20111010
  Serious: Yes (Life-Threatening, Other)
  Sender: FDA-Public Use
  Company Number: None

PATIENT
  Sex: Male
  Weight: 87.5442 kg

DRUGS (1)
  1. HYDROCODONE BITARTRATE [Suspect]
     Indication: WRIST FRACTURE
     Dosage: 1 EACH 6 HOURS ORAL
     Route: 048
     Dates: start: 20110422

REACTIONS (1)
  - DOCUMENTED HYPERSENSITIVITY TO ADMINISTERED DRUG [None]
